FAERS Safety Report 11576666 (Version 2)
Quarter: 2016Q3

REPORT INFORMATION
  Report Type: Spontaneous
  Country: US (occurrence: US)
  Receive Date: 20150930
  Receipt Date: 20160811
  Transmission Date: 20161109
  Serious: Yes (Other)
  Sender: FDA-Public Use
  Company Number: US-LUNDBECK-DKLU2004559

PATIENT
  Sex: Female

DRUGS (2)
  1. NORTHERA [Suspect]
     Active Substance: DROXIDOPA
     Indication: MULTIPLE SCLEROSIS
     Route: 048
     Dates: start: 201506
  2. NORTHERA [Suspect]
     Active Substance: DROXIDOPA
     Indication: HYPOTENSION
     Route: 048
     Dates: start: 20150611

REACTIONS (5)
  - Headache [Unknown]
  - Red blood cell abnormality [Unknown]
  - Bladder pain [Unknown]
  - Haemoglobin abnormal [Unknown]
  - Haemorrhage [Unknown]
